FAERS Safety Report 5081095-1 (Version None)
Quarter: 2006Q3

REPORT INFORMATION
  Report Type: 
  Country: None (occurrence: None)
  Receive Date: 20060816
  Receipt Date: 20060804
  Transmission Date: 20061208
  Serious: Yes (Death, Hospitalization)
  Sender: FDA-Public Use
  Company Number: EG-ABBOTT-06P-048-0339642-00

PATIENT
  Age: 14 Year
  Sex: Male

DRUGS (2)
  1. DEPAKENE [Suspect]
     Indication: EPILEPSY
     Route: 048
     Dates: start: 20051201, end: 20060615
  2. LAMOTRIGINE [Concomitant]
     Indication: EPILEPSY
     Route: 048
     Dates: start: 20051201, end: 20060615

REACTIONS (5)
  - BLOOD GASES ABNORMAL [None]
  - INTRACRANIAL PRESSURE INCREASED [None]
  - METABOLIC ENCEPHALOPATHY [None]
  - PAPILLOEDEMA [None]
  - REYE'S SYNDROME [None]
